FAERS Safety Report 9046253 (Version 1)
Quarter: 2013Q1

REPORT INFORMATION
  Report Type: Spontaneous
  Country: US (occurrence: None)
  Receive Date: 20130128
  Receipt Date: 20130128
  Transmission Date: 20140127
  Serious: No
  Sender: FDA-Public Use
  Company Number: None

PATIENT
  Age: 71 Year
  Sex: Female

DRUGS (8)
  1. QSYMIA [Suspect]
     Indication: OBESITY
     Dosage: QSYMIA 3.75MG/24MG  DAILY X 14 DAYS  ORALLY?14 DAYS
     Route: 048
  2. QSYMIA [Suspect]
     Dosage: QSYMIA  7.5 MG/ 46MG  DAILY  ORALLY?10/2012  -  12/2012
     Route: 048
     Dates: start: 201210, end: 201212
  3. ATENOLOL [Concomitant]
  4. LOSARTAN [Concomitant]
  5. AMLODIPINE [Concomitant]
  6. ALLOPURINOL [Concomitant]
  7. SIMVASTATIN [Concomitant]
  8. LEVOTHYROXINE [Concomitant]

REACTIONS (3)
  - Drug ineffective [None]
  - Hunger [None]
  - Weight increased [None]
